FAERS Safety Report 6294487-X (Version None)
Quarter: 2009Q3

REPORT INFORMATION
  Report Type: 
  Country: None (occurrence: None)
  Receive Date: 20090803
  Receipt Date: 20090723
  Transmission Date: 20100115
  Serious: Yes (Disabling, Congenital Anomaly)
  Sender: FDA-Public Use
  Company Number: CH-ASTRAZENECA-2009SE06047

PATIENT
  Age: 0 Week

DRUGS (4)
  1. SEROQUEL [Suspect]
     Indication: BORDERLINE PERSONALITY DISORDER
     Route: 064
     Dates: start: 20071101
  2. SERESTA [Suspect]
     Route: 064
     Dates: start: 20070101
  3. REMERON [Suspect]
     Indication: BORDERLINE PERSONALITY DISORDER
     Route: 064
     Dates: start: 20080201, end: 20081001
  4. STILNOX [Suspect]
     Indication: INSOMNIA
     Route: 064
     Dates: start: 20070101

REACTIONS (1)
  - PSYCHOMOTOR SKILLS IMPAIRED [None]
